FAERS Safety Report 12067830 (Version 1)
Quarter: 2016Q1

REPORT INFORMATION
  Report Type: Spontaneous
  Country: US (occurrence: US)
  Receive Date: 20160211
  Receipt Date: 20160211
  Transmission Date: 20160526
  Serious: No
  Sender: FDA-Public Use
  Company Number: US-SMITH AND NEPHEW, INC-2015SMT00089

PATIENT
  Age: 88 Year
  Sex: Female
  Weight: 65.76 kg

DRUGS (3)
  1. TIMOLOL. [Concomitant]
     Active Substance: TIMOLOL
     Dosage: 1 DOSAGE UNITS, 2X/DAY
     Route: 047
     Dates: start: 1990
  2. REGRANEX [Suspect]
     Active Substance: BECAPLERMIN
     Indication: WOUND
     Dosage: 1 DOSAGE UNITS, 1X/DAY
     Route: 061
     Dates: start: 20150423, end: 20150424
  3. TRAVATAN [Concomitant]
     Active Substance: TRAVOPROST
     Dosage: 1 DOSAGE UNITS, 1X/DAY
     Route: 047
     Dates: start: 1990

REACTIONS (3)
  - Application site pain [Recovered/Resolved]
  - Off label use [Recovered/Resolved]
  - Application site erythema [Not Recovered/Not Resolved]

NARRATIVE: CASE EVENT DATE: 20150423
